FAERS Safety Report 11335610 (Version 1)
Quarter: 2015Q3

REPORT INFORMATION
  Report Type: Spontaneous
  Country: GB (occurrence: GB)
  Receive Date: 20150804
  Receipt Date: 20150804
  Transmission Date: 20151125
  Serious: Yes (Life-Threatening, Hospitalization, Other)
  Sender: FDA-Public Use
  Company Number: GB-PFIZER INC-2015257990

PATIENT
  Age: 65 Year
  Weight: 46 kg

DRUGS (12)
  1. GENTAMICIN. [Suspect]
     Active Substance: GENTAMICIN
     Dosage: 120 MG, UNK
     Route: 042
     Dates: start: 20150722, end: 20150722
  2. TARGOCID [Suspect]
     Active Substance: TEICOPLANIN
     Dosage: 400 MG, UNK
     Route: 042
     Dates: start: 20150722, end: 20150722
  3. FENTANYL. [Suspect]
     Active Substance: FENTANYL
     Dosage: 200 ?G, UNK
     Route: 042
     Dates: start: 20150722, end: 20150722
  4. DIAMORPHINE HYDROCHLORIDE [Suspect]
     Active Substance: DIACETYLMORPHINE HYDROCHLORIDE
     Dosage: 800 ?G, UNK
     Route: 037
     Dates: start: 20150722, end: 20150722
  5. SUCCINYLCHOLINE CHLORIDE. [Suspect]
     Active Substance: SUCCINYLCHOLINE CHLORIDE
     Dosage: 80 MG, UNK
     Route: 042
     Dates: start: 20150722, end: 20150722
  6. LIDOCAINE. [Suspect]
     Active Substance: LIDOCAINE
     Dosage: 20 MG, UNK
     Route: 058
     Dates: start: 20150722, end: 20150722
  7. DEXAMETHASONE. [Suspect]
     Active Substance: DEXAMETHASONE
     Dosage: 6.6 MG, UNK
     Route: 042
     Dates: start: 20150722, end: 20150722
  8. PROPOFOL. [Suspect]
     Active Substance: PROPOFOL
     Dosage: 150 MG, UNK
     Route: 042
     Dates: start: 20150722, end: 20150722
  9. MAGNESIUM SULPHATE /01097001/ [Suspect]
     Active Substance: MAGNESIUM SULFATE
     Dosage: 2.5 G, UNK
     Route: 042
     Dates: start: 20150722, end: 20150722
  10. ESMERON [Suspect]
     Active Substance: ROCURONIUM BROMIDE
     Dosage: 15 MG, UNK
     Route: 042
     Dates: start: 20150722, end: 20150722
  11. MARCAIN HEAVY [Suspect]
     Active Substance: BUPIVACAINE HYDROCHLORIDE
     Dosage: 7.5 MG, UNK
     Route: 037
     Dates: start: 20150722, end: 20150722
  12. METRONIDAZOLE. [Suspect]
     Active Substance: METRONIDAZOLE
     Dosage: 500 MG, UNK
     Route: 042
     Dates: start: 20150722, end: 20150722

REACTIONS (1)
  - Anaphylactic reaction [Recovering/Resolving]

NARRATIVE: CASE EVENT DATE: 20150722
